FAERS Safety Report 6060848-7 (Version None)
Quarter: 2009Q1

REPORT INFORMATION
  Report Type: 
  Country: None (occurrence: None)
  Receive Date: 20090202
  Receipt Date: 20090129
  Transmission Date: 20090719
  Serious: Yes (Death)
  Sender: FDA-Public Use
  Company Number: US-BAYER-200831799GPV

PATIENT
  Age: 23 Year
  Sex: Female

DRUGS (2)
  1. AVELOX [Suspect]
     Indication: RESPIRATORY DISORDER
  2. CONTRACEPTIVES NOS [Concomitant]
     Indication: CONTRACEPTION
     Route: 048

REACTIONS (7)
  - ACUTE HEPATIC FAILURE [None]
  - DRUG HYPERSENSITIVITY [None]
  - HYPOTENSION [None]
  - LYMPHADENOPATHY [None]
  - PYREXIA [None]
  - RENAL FAILURE ACUTE [None]
  - TOXIC EPIDERMAL NECROLYSIS [None]
